FAERS Safety Report 20361991 (Version 7)
Quarter: 2025Q3

REPORT INFORMATION
  Report Type: Spontaneous
  Country: EU (occurrence: EU)
  Receive Date: 20220121
  Receipt Date: 20250807
  Transmission Date: 20251020
  Serious: Yes (Hospitalization, Other)
  Sender: MYLAN
  Company Number: EU-CZ26206285-Heaton20211228

PATIENT
  Age: 49 Year
  Sex: Male
  Weight: 77 kg

DRUGS (13)
  1. MYCOPHENOLATE MOFETIL [Suspect]
     Active Substance: MYCOPHENOLATE MOFETIL
     Indication: Renal transplant
  2. MYCOPHENOLATE MOFETIL [Suspect]
     Active Substance: MYCOPHENOLATE MOFETIL
     Indication: Immunosuppressant drug therapy
     Dosage: 1 GRAM, BID
     Dates: start: 2019, end: 202102
  3. MYCOPHENOLATE MOFETIL [Suspect]
     Active Substance: MYCOPHENOLATE MOFETIL
     Indication: Immunosuppression
  4. TACROLIMUS [Suspect]
     Active Substance: TACROLIMUS
     Indication: Immunosuppression
     Dosage: UNK UNK, QD
     Dates: start: 202103
  5. TACROLIMUS [Suspect]
     Active Substance: TACROLIMUS
     Indication: Renal transplant
  6. TACROLIMUS [Suspect]
     Active Substance: TACROLIMUS
     Indication: Immunosuppressant drug therapy
  7. ISCALIMAB [Suspect]
     Active Substance: ISCALIMAB
     Indication: Immunosuppression
     Dosage: 300 MG OR 600 MG PARTIALLY BLINDED, BI-WEEKLY
     Dates: start: 201907
  8. ISCALIMAB [Suspect]
     Active Substance: ISCALIMAB
  9. THYMOCYTE IMMUNE GLOBULIN NOS [Suspect]
     Active Substance: THYMOCYTE IMMUNE GLOBULIN NOS
     Indication: Immunosuppressant drug therapy
     Dosage: 2.9 MILLIGRAM/KILOGRAM, QD
  10. THYMOCYTE IMMUNE GLOBULIN NOS [Suspect]
     Active Substance: THYMOCYTE IMMUNE GLOBULIN NOS
     Indication: Immunosuppression
     Dosage: 125 MILLIGRAM, QD
     Dates: start: 201907
  11. PREDNISONE [Suspect]
     Active Substance: PREDNISONE
     Indication: Immunosuppressant drug therapy
     Dosage: 20 MILLIGRAM, QD
     Dates: start: 201907
  12. PREDNISONE [Suspect]
     Active Substance: PREDNISONE
     Indication: Immunosuppression
     Dosage: 5 MILLIGRAM, QD
     Dates: start: 2019
  13. PREDNISONE [Suspect]
     Active Substance: PREDNISONE
     Dates: start: 202103, end: 202209

REACTIONS (8)
  - Condition aggravated [Not Recovered/Not Resolved]
  - Disseminated tuberculosis [Recovering/Resolving]
  - Tuberculosis [Recovering/Resolving]
  - Diarrhoea [Unknown]
  - Tracheitis [Unknown]
  - Oropharyngeal pain [Unknown]
  - Cough [Unknown]
  - COVID-19 [Unknown]

NARRATIVE: CASE EVENT DATE: 20201001
